FAERS Safety Report 7395400-4 (Version None)
Quarter: 2011Q2

REPORT INFORMATION
  Report Type: 
  Country: None (occurrence: None)
  Receive Date: 20110405
  Receipt Date: 20110401
  Transmission Date: 20111010
  Serious: Yes (Life-Threatening, Hospitalization)
  Sender: FDA-Public Use
  Company Number: DE-ASTRAZENECA-2011SE18462

PATIENT
  Age: 57 Year
  Sex: Male
  Weight: 86 kg

DRUGS (4)
  1. ASPIRIN [Concomitant]
     Dates: start: 20110315
  2. BRILIQUE [Suspect]
     Route: 048
     Dates: start: 20110323
  3. CLOPIDOGREL [Concomitant]
     Dates: start: 20110322
  4. BRILIQUE [Suspect]
     Indication: ACUTE MYOCARDIAL INFARCTION
     Route: 048
     Dates: start: 20110315, end: 20110321

REACTIONS (1)
  - THROMBOSIS [None]
